FAERS Safety Report 6807177-9 (Version None)
Quarter: 2010Q2

REPORT INFORMATION
  Report Type: 
  Country: None (occurrence: None)
  Receive Date: 20100629
  Receipt Date: 20081120
  Transmission Date: 20101027
  Serious: No
  Sender: FDA-Public Use
  Company Number: US-PFIZER INC-2008044344

PATIENT
  Sex: Female
  Weight: 108.86 kg

DRUGS (2)
  1. ARTHROTEC [Suspect]
     Indication: ARTHRITIS
     Dates: start: 20071001
  2. PLAQUENIL [Concomitant]

REACTIONS (2)
  - BLOOD URIC ACID INCREASED [None]
  - DRUG INEFFECTIVE [None]
